FAERS Safety Report 19087342 (Version 2)
Quarter: 2021Q2

REPORT INFORMATION
  Report Type: Report from Study
  Country: US (occurrence: US)
  Receive Date: 20210402
  Receipt Date: 20210409
  Transmission Date: 20210717
  Serious: Yes (Hospitalization, Other)
  Sender: FDA-Public Use
  Company Number: US-BRISTOL-MYERS SQUIBB COMPANY-BMS-2021-030283

PATIENT
  Age: 74 Year
  Sex: Male
  Weight: 92.06 kg

DRUGS (14)
  1. HALDOL [Concomitant]
     Active Substance: HALOPERIDOL
     Indication: ANXIETY
  2. ZYPREXA [Concomitant]
     Active Substance: OLANZAPINE
     Indication: RESTLESSNESS
  3. ZYPREXA [Concomitant]
     Active Substance: OLANZAPINE
     Indication: AGITATION
     Dosage: 2.5 MILLIGRAM, QID
     Route: 048
  4. MIRALAX [Concomitant]
     Active Substance: POLYETHYLENE GLYCOL 3350
     Indication: PRODUCT USED FOR UNKNOWN INDICATION
     Dosage: 17 GRAM, QD
     Route: 048
  5. SENOKOT?S [Concomitant]
     Active Substance: DOCUSATE SODIUM\SENNOSIDES
     Indication: CONSTIPATION
     Dosage: 8.6 MG?50 MG TABLET TAKE 2 TABLETS BY MOUTH 2 (TWO) TIMES A DAY AS NEEDED
     Route: 048
  6. IPILIMUMAB [Suspect]
     Active Substance: IPILIMUMAB
     Indication: PROSTATE CANCER
     Route: 065
  7. ZYPREXA [Concomitant]
     Active Substance: OLANZAPINE
     Indication: DELIRIUM
  8. HALDOL [Concomitant]
     Active Substance: HALOPERIDOL
     Indication: RESTLESSNESS
  9. BISACODYL. [Concomitant]
     Active Substance: BISACODYL
     Indication: CONSTIPATION
     Dosage: 10 MILLIGRAM, BID
     Route: 054
  10. HALDOL [Concomitant]
     Active Substance: HALOPERIDOL
     Indication: DELIRIUM
  11. DS3201 [Suspect]
     Active Substance: INVESTIGATIONAL PRODUCT
     Indication: PROSTATE CANCER
     Route: 065
  12. DILAUDID [Concomitant]
     Active Substance: HYDROMORPHONE HYDROCHLORIDE
     Indication: PAIN
     Dosage: 1 MG/LL INFUSE 0.5 MG INTRAVENOUSLY EVERY 2 (TWO) HOURS AS
     Route: 042
  13. ZYPREXA [Concomitant]
     Active Substance: OLANZAPINE
     Indication: ANXIETY
  14. HALDOL [Concomitant]
     Active Substance: HALOPERIDOL
     Indication: AGITATION
     Dosage: 5 MG/MI? INJECTION INFUSE 0.2 ML (1 MG) INTRAVENOUSLY EVERY 6 (SIX)
     Route: 042

REACTIONS (4)
  - Metastases to bone [Unknown]
  - Arthralgia [Unknown]
  - Cancer pain [Unknown]
  - Confusional state [Unknown]

NARRATIVE: CASE EVENT DATE: 20210320
